FAERS Safety Report 4732494-6 (Version None)
Quarter: 2005Q3

REPORT INFORMATION
  Report Type: 
  Country: None (occurrence: None)
  Receive Date: 20050803
  Receipt Date: 20050701
  Transmission Date: 20060218
  Serious: Yes (Hospitalization)
  Sender: FDA-Public Use
  Company Number: US-GLAXOSMITHKLINE-A0564854A

PATIENT
  Age: 71 Year
  Sex: Male

DRUGS (14)
  1. ADVAIR DISKUS 100/50 [Suspect]
     Indication: ASTHMA
     Dosage: 1PUFF ALTERNATE DAYS
     Route: 055
  2. COMBIVENT [Concomitant]
  3. QVAR 40 [Concomitant]
  4. UNKNOWN MEDICATION [Concomitant]
  5. FUROSEMIDE [Concomitant]
  6. COUMADIN [Concomitant]
  7. POTASSIUM CHLORIDE [Concomitant]
  8. OMEPRAZOLE [Concomitant]
  9. TOPROL-XL [Concomitant]
  10. PREDNISONE [Concomitant]
  11. BENICAR [Concomitant]
  12. FLOMAX [Concomitant]
  13. ASTELIN [Concomitant]
  14. PAU D'ARCO [Concomitant]

REACTIONS (1)
  - LOWER GASTROINTESTINAL HAEMORRHAGE [None]
